FAERS Safety Report 16269724 (Version 1)
Quarter: 2019Q2

REPORT INFORMATION
  Report Type: Spontaneous
  Country: US (occurrence: US)
  Receive Date: 20190503
  Receipt Date: 20190503
  Transmission Date: 20190711
  Serious: No
  Sender: FDA-Public Use
  Company Number: US-PFIZER INC-2019181897

PATIENT
  Age: 73 Year
  Sex: Male
  Weight: 104 kg

DRUGS (10)
  1. POTASSIUM [Suspect]
     Active Substance: POTASSIUM
     Dosage: 40 MEQ, 2X/DAY
     Route: 048
     Dates: start: 201601
  2. FUROSEMIDE. [Suspect]
     Active Substance: FUROSEMIDE
     Dosage: 60 MG, 1X/DAY
     Dates: start: 20190424
  3. FUROSEMIDE. [Suspect]
     Active Substance: FUROSEMIDE
     Indication: HYPERTENSION
     Dosage: 40 MG, 2X/DAY [IN MORNING AND IN EVENING ]
     Route: 048
     Dates: start: 201903
  4. FUROSEMIDE. [Suspect]
     Active Substance: FUROSEMIDE
     Dosage: 80 MG, 1X/DAY
  5. AMLODIPINE BESILATE [Suspect]
     Active Substance: AMLODIPINE BESYLATE
     Indication: HYPERTENSION
     Dosage: 5 MG, 1X/DAY
     Route: 048
     Dates: end: 201904
  6. POTASSIUM [Suspect]
     Active Substance: POTASSIUM
     Dosage: 15 MEQ, 1X/DAY
     Dates: start: 2016
  7. POTASSIUM [Suspect]
     Active Substance: POTASSIUM
     Dosage: UNK, 2X/DAY (10MEQ TABLET BY MOUTH IN AM AND 1/2 TABLET BY MOUTH IN EVENING)
     Route: 048
  8. POTASSIUM [Suspect]
     Active Substance: POTASSIUM
     Dosage: 5 MEQ, 1X/DAY
     Dates: start: 201601
  9. FUROSEMIDE. [Suspect]
     Active Substance: FUROSEMIDE
     Dosage: UNK, [20 MG 2 IN THE MORNING AND 1 IN THE EVENING]
  10. POTASSIUM [Suspect]
     Active Substance: POTASSIUM
     Dosage: UNK, [40MEQ TABLET BY MOUTH IN AM AND 20MEQ TABLET BY MOUTH IN EVENING]
     Dates: start: 20190424

REACTIONS (4)
  - Intentional product misuse [Unknown]
  - Joint swelling [Not Recovered/Not Resolved]
  - Nocturia [Recovering/Resolving]
  - Peripheral swelling [Not Recovered/Not Resolved]

NARRATIVE: CASE EVENT DATE: 201903
